FAERS Safety Report 6401754-5 (Version None)
Quarter: 2009Q4

REPORT INFORMATION
  Report Type: 
  Country: None (occurrence: None)
  Receive Date: 20091009
  Receipt Date: 20090929
  Transmission Date: 20100525
  Serious: Yes (Hospitalization, Other)
  Sender: FDA-Public Use
  Company Number: 090909-0000956

PATIENT
  Age: 2 Year
  Sex: Female

DRUGS (1)
  1. ELSPAR [Suspect]
     Indication: ACUTE LYMPHOCYTIC LEUKAEMIA

REACTIONS (7)
  - CIRCULATORY COLLAPSE [None]
  - DISEASE COMPLICATION [None]
  - MULTI-ORGAN DISORDER [None]
  - PANCREATIC PSEUDOCYST [None]
  - PANCREATITIS ACUTE [None]
  - SHOCK [None]
  - STAPHYLOCOCCAL INFECTION [None]
